FAERS Safety Report 4401569-3 (Version None)
Quarter: 2004Q3

REPORT INFORMATION
  Report Type: 
  Country: None (occurrence: None)
  Receive Date: 20040719
  Receipt Date: 20040708
  Transmission Date: 20050211
  Serious: Yes (Other)
  Sender: FDA-Public Use
  Company Number: JP-MERCK-0407USA00803

PATIENT
  Age: 79 Year
  Sex: Male

DRUGS (8)
  1. FOSAMAX [Suspect]
     Indication: OSTEOPOROSIS
     Route: 048
     Dates: start: 20020515, end: 20040704
  2. MUCOSOLVAN [Concomitant]
     Indication: PRODUCTIVE COUGH
     Route: 048
     Dates: start: 20011001
  3. TAGAMET [Concomitant]
     Indication: GASTRITIS
     Route: 048
     Dates: start: 20020601
  4. CORTICOSTEROIDS (UNSPECIFIED) [Concomitant]
     Indication: OPTIC ISCHAEMIC NEUROPATHY
     Route: 065
     Dates: start: 20020308
  5. ETODOLAC [Concomitant]
     Indication: BACK PAIN
     Route: 048
     Dates: start: 20020605
  6. GLYBURIDE [Concomitant]
     Indication: DIABETES MELLITUS
     Route: 048
     Dates: start: 20011001
  7. ACTOS [Concomitant]
     Indication: DIABETES MELLITUS
     Route: 048
     Dates: start: 20011001
  8. PRAVASTATIN SODIUM [Concomitant]
     Indication: BLOOD CHOLESTEROL ABNORMAL
     Route: 048
     Dates: start: 20020417

REACTIONS (2)
  - BLINDNESS [None]
  - VISUAL ACUITY REDUCED [None]
